FAERS Safety Report 8390273 (Version 2)
Quarter: 2012Q4

REPORT INFORMATION
  Report Type: 
  Country: IT (occurrence: IT)
  Receive Date: 20120203
  Receipt Date: 20120928
  Transmission Date: 20130627
  Serious: Yes (Other)
  Sender: FDA-Public Use
  Company Number: PHHY2012IT008007

PATIENT
  Age: 87 Year
  Sex: Male

DRUGS (7)
  1. FLUVASTATIN SODIUM [Suspect]
     Dosage: 80 mg, daily
  2. METFORMIN [Concomitant]
  3. ALLOPURINOL [Concomitant]
  4. ISOSORBIDE MONONITRATE [Concomitant]
  5. FUROSEMIDE [Concomitant]
  6. SALMETEROL [Concomitant]
  7. FLUTICASONE [Concomitant]

REACTIONS (1)
  - Breast disorder male [Recovering/Resolving]
